FAERS Safety Report 5196991-4 (Version None)
Quarter: 2006Q4

REPORT INFORMATION
  Report Type: 
  Country: None (occurrence: None)
  Receive Date: 20061227
  Receipt Date: 20061214
  Transmission Date: 20070319
  Serious: Yes (Death)
  Sender: FDA-Public Use
  Company Number: 2006154122

PATIENT
  Age: 62 Year
  Sex: Male

DRUGS (4)
  1. SOLU-MEDROL [Suspect]
     Dosage: 120 MG (1 IN 1 D), INTRAVENOUS
     Route: 042
     Dates: start: 20060628, end: 20060702
  2. ENOXAPARIN SODIUM [Suspect]
     Dosage: 0.4 ML (1 IN 1 D), SUBCUTANEOUS
     Route: 058
     Dates: start: 20060630, end: 20060630
  3. PANTOPRAZOLE SODIUM [Suspect]
     Dosage: 40 MG (1 IN 1 D), INTRAVENOUS
     Route: 042
  4. ACETAMINOPHEN [Suspect]
     Dosage: 1 GRAM (4 IN 1 D), INTRAVENOUS
     Route: 042
     Dates: start: 20060629, end: 20060630

REACTIONS (4)
  - ASTHENIA [None]
  - GENERAL PHYSICAL HEALTH DETERIORATION [None]
  - RENAL FAILURE ACUTE [None]
  - THROMBOCYTOPENIA [None]
